FAERS Safety Report 6013809-8 (Version None)
Quarter: 2008Q4

REPORT INFORMATION
  Report Type: 
  Country: None (occurrence: None)
  Receive Date: 20081219
  Receipt Date: 20081208
  Transmission Date: 20090506
  Serious: Yes (Hospitalization, Other)
  Sender: FDA-Public Use
  Company Number: IE-PFIZER INC-2008151438

PATIENT

DRUGS (1)
  1. ATORVASTATIN CALCIUM [Suspect]
     Route: 048

REACTIONS (4)
  - CIRCULATORY COLLAPSE [None]
  - FALL [None]
  - MUSCULAR WEAKNESS [None]
  - NAUSEA [None]
